FAERS Safety Report 8410818-6 (Version None)
Quarter: 2012Q2

REPORT INFORMATION
  Report Type: 
  Country: None (occurrence: None)
  Receive Date: 20120605
  Receipt Date: 20120601
  Transmission Date: 20120825
  Serious: Yes (Hospitalization)
  Sender: FDA-Public Use
  Company Number: IT-PFIZER INC-2012133256

PATIENT
  Age: 82 Year
  Sex: Male

DRUGS (12)
  1. ACETAMINOPHEN [Concomitant]
     Indication: PYREXIA
     Dosage: 1 G, UNK
     Route: 042
  2. TARGOCID [Suspect]
     Indication: SEPSIS
     Dosage: 400 MG, DAILY
     Route: 042
     Dates: start: 20120307, end: 20120321
  3. CALCIUM CARBONATE [Concomitant]
     Dosage: UNK
     Route: 048
     Dates: start: 20120210, end: 20120316
  4. FLUTICASONE PROPIONATE/SALMETEROL [Concomitant]
     Dosage: UNK
     Dates: start: 20120208, end: 20120316
  5. ROCALTROL [Concomitant]
     Dosage: 0.25 UG, UNK
     Route: 048
     Dates: start: 20120209, end: 20120316
  6. IDROPLURIVIT [Concomitant]
     Dosage: UNK
     Dates: start: 20120216, end: 20120316
  7. OMEPRAZOLE (PRISOLEC) [Concomitant]
     Dosage: 20 MG, UNK
     Dates: start: 20120212, end: 20120316
  8. ZOLOFT [Suspect]
     Indication: SUICIDE ATTEMPT
     Dosage: 25 MG, DAILY
     Route: 048
     Dates: start: 20120301, end: 20120316
  9. ACETYLCYSTEINE [Concomitant]
     Dosage: 200 MG, UNK
     Dates: start: 20120212, end: 20120316
  10. BENEXOL [Concomitant]
     Dosage: 1 DOSAGE UNIT
     Route: 048
  11. NORVASC [Concomitant]
     Indication: HYPERTENSION
     Dosage: 10 MG, UNK
     Route: 048
     Dates: start: 20120210, end: 20120316
  12. SPIRIVA [Concomitant]
     Indication: OBSTRUCTIVE AIRWAYS DISORDER
     Dosage: UNK
     Dates: start: 20120209, end: 20120316

REACTIONS (2)
  - PRURITUS [None]
  - ERYTHEMA [None]
